FAERS Safety Report 4996310-X (Version None)
Quarter: 2006Q2

REPORT INFORMATION
  Report Type: 
  Country: None (occurrence: None)
  Receive Date: 20060505
  Receipt Date: 20060428
  Transmission Date: 20061013
  Serious: Yes (Disabling, Other)
  Sender: FDA-Public Use
  Company Number: HQWYE565530JAN06

PATIENT
  Age: 62 Year
  Sex: 0

DRUGS (4)
  1. PANTOPRAZOLE SODIUM [Suspect]
     Indication: GASTROOESOPHAGEAL REFLUX DISEASE
     Dosage: 40 MG 1X PER 1 DAY ORAL
     Route: 048
     Dates: end: 20051001
  2. PANTOPRAZOLE SODIUM [Suspect]
     Indication: OESOPHAGITIS
     Dosage: 40 MG 1X PER 1 DAY ORAL
     Route: 048
     Dates: end: 20051001
  3. ASPIRIN [Concomitant]
  4. ATENOLOL [Concomitant]

REACTIONS (1)
  - VENTRICULAR EXTRASYSTOLES [None]
